FAERS Safety Report 17716869 (Version 2)
Quarter: 2020Q2

REPORT INFORMATION
  Report Type: Spontaneous
  Country: JP (occurrence: JP)
  Receive Date: 20200428
  Receipt Date: 20200617
  Transmission Date: 20200714
  Serious: Yes (Hospitalization, Other)
  Sender: FDA-Public Use
  Company Number: JP-AMGEN-JPNSP2020067540

PATIENT
  Age: 41 Year
  Sex: Male
  Weight: 84 kg

DRUGS (9)
  1. FOSRENOL [Concomitant]
     Active Substance: LANTHANUM CARBONATE
     Dosage: 1500 MG, EVERYDAY
     Route: 065
     Dates: start: 20181228
  2. P-TOL [SUCROFERRIC OXYHYDROXIDE] [Concomitant]
     Active Substance: SUCROFERRIC OXYHYDROXIDE
     Dosage: 1500 MILLIGRAM, QD
     Route: 065
  3. OXAROL [Concomitant]
     Active Substance: MAXACALCITOL
     Dosage: 2.5 UG, Q56H
     Route: 065
     Dates: start: 20180924
  4. FOSRENOL [Concomitant]
     Active Substance: LANTHANUM CARBONATE
     Dosage: 750 MG, EVERYDAY
     Route: 065
     Dates: end: 20181227
  5. PARSABIV [Suspect]
     Active Substance: ETELCALCETIDE HYDROCHLORIDE
     Dosage: 2.5 MG, Q56H
     Route: 010
     Dates: start: 20181210
  6. PARSABIV [Suspect]
     Active Substance: ETELCALCETIDE HYDROCHLORIDE
     Indication: HYPERPARATHYROIDISM SECONDARY
     Dosage: 5 MG, Q56H
     Route: 010
     Dates: start: 20180521, end: 20181207
  7. OXAROL [Concomitant]
     Active Substance: MAXACALCITOL
     Dosage: 5 MICROGRAM, 3 TIMES/WK
     Route: 065
     Dates: end: 20180921
  8. OXAROL [Concomitant]
     Active Substance: MAXACALCITOL
     Dosage: 2.5 MICROGRAM, 3 TIMES/WK
     Route: 065
     Dates: start: 20180924
  9. OXAROL [Concomitant]
     Active Substance: MAXACALCITOL
     Dosage: 5 UG, Q56H
     Route: 065
     Dates: end: 20180921

REACTIONS (2)
  - Shunt stenosis [Recovered/Resolved]
  - Shunt occlusion [Recovered/Resolved]

NARRATIVE: CASE EVENT DATE: 20190904
